FAERS Safety Report 15762570 (Version 2)
Quarter: 2018Q4

REPORT INFORMATION
  Report Type: Spontaneous
  Country: GB (occurrence: GB)
  Receive Date: 20181226
  Receipt Date: 20181226
  Transmission Date: 20190205
  Serious: Yes (Other)
  Sender: FDA-Public Use
  Company Number: GB-PFIZER INC-2009299918

PATIENT
  Age: 69 Year
  Sex: Female

DRUGS (2)
  1. VINORELBINE TARTRATE. [Suspect]
     Active Substance: VINORELBINE TARTRATE
     Indication: NON-SMALL CELL LUNG CANCER STAGE IIIB
     Dosage: 30 MG/KG, CYCLIC (1X EVERY 21 DAYS, DAY 1 AND DAY 8)
     Route: 042
  2. CISPLATIN. [Suspect]
     Active Substance: CISPLATIN
     Indication: NON-SMALL CELL LUNG CANCER STAGE IIIB
     Dosage: 80 MG/KG, CYCLIC (1X EVERY 21 DAYS, DAY1)
     Route: 042

REACTIONS (1)
  - Neutropenic sepsis [Unknown]
